FAERS Safety Report 17049765 (Version 1)
Quarter: 2019Q4

REPORT INFORMATION
  Report Type: Spontaneous
  Country: PT (occurrence: PT)
  Receive Date: 20191119
  Receipt Date: 20191119
  Transmission Date: 20200122
  Serious: Yes (Other)
  Sender: FDA-Public Use
  Company Number: PT-MYLANLABS-2019M1110757

PATIENT
  Age: 68 Year
  Sex: Male

DRUGS (2)
  1. CARBOPLATIN. [Suspect]
     Active Substance: CARBOPLATIN
     Indication: LUNG ADENOCARCINOMA
     Dosage: UNK
     Dates: start: 20170121, end: 20170313
  2. PACLITAXEL. [Suspect]
     Active Substance: PACLITAXEL
     Indication: LUNG ADENOCARCINOMA
     Dosage: UNK
     Dates: start: 20170121, end: 20170313

REACTIONS (2)
  - Cough [Recovering/Resolving]
  - Anaemia [Unknown]
